FAERS Safety Report 10204870 (Version 2)
Quarter: 2014Q2

REPORT INFORMATION
  Report Type: Spontaneous
  Country: IT (occurrence: IT)
  Receive Date: 20140529
  Receipt Date: 20140604
  Transmission Date: 20141212
  Serious: Yes (Other)
  Sender: FDA-Public Use
  Company Number: IT-TEVA-482895ISR

PATIENT
  Age: 32 Year
  Sex: Female

DRUGS (7)
  1. DELORAZEPAM [Suspect]
     Indication: DRUG ABUSE
     Dosage: 40 ML TOTAL. ORAL DROPS, SOLUTION
     Route: 048
     Dates: start: 20140401, end: 20140401
  2. DELORAZEPAM [Suspect]
     Indication: DEPRESSION
  3. PAROXETINE [Suspect]
     Indication: DRUG ABUSE
     Dosage: 40 MG TOTAL
     Route: 048
     Dates: start: 20140401, end: 20140401
  4. PAROXETINE [Suspect]
     Indication: DEPRESSION
  5. LEXOTAN - 1.5 MG COMPRESSE - ROCHE S.P.A. [Suspect]
     Indication: DRUG ABUSE
     Dosage: 45 MG TOTAL
     Route: 048
     Dates: start: 20140401, end: 20140401
  6. LEXOTAN - 1.5 MG COMPRESSE - ROCHE S.P.A. [Suspect]
     Indication: DEPRESSION
  7. VELAMOX - 1 G COMPRESSE DISPERSIBILI - MEDIOLANUM FARMACEUTICI SPA [Suspect]
     Indication: DRUG ABUSE
     Dosage: 12 MG TOTAL
     Route: 048
     Dates: start: 20140401, end: 20140401

REACTIONS (3)
  - Intentional self-injury [Recovered/Resolved]
  - Drug abuse [Recovered/Resolved]
  - Sopor [Recovered/Resolved]
